FAERS Safety Report 19004296 (Version 1)
Quarter: 2021Q1

REPORT INFORMATION
  Report Type: Spontaneous
  Country: CN (occurrence: CN)
  Receive Date: 20210312
  Receipt Date: 20210312
  Transmission Date: 20210420
  Serious: Yes (Death, Hospitalization, Other)
  Sender: FDA-Public Use
  Company Number: CN-JNJFOC-20210317287

PATIENT
  Sex: Female

DRUGS (8)
  1. BOSENTAN. [Suspect]
     Active Substance: BOSENTAN
     Indication: PULMONARY HYPERTENSION
     Route: 065
  2. DIURETICS [Concomitant]
     Active Substance: UNSPECIFIED INGREDIENT
  3. TADALAFIL. [Concomitant]
     Active Substance: TADALAFIL
     Indication: PULMONARY HYPERTENSION
  4. DIGOXIN. [Concomitant]
     Active Substance: DIGOXIN
  5. SODIUM NITROPRUSSIDE. [Concomitant]
     Active Substance: SODIUM NITROPRUSSIDE
  6. SILDENAFIL. [Concomitant]
     Active Substance: SILDENAFIL
     Indication: PULMONARY HYPERTENSION
  7. CEDILANID [LANATOSIDE C] [Concomitant]
  8. METOPROLOL. [Concomitant]
     Active Substance: METOPROLOL

REACTIONS (12)
  - Postpartum haemorrhage [Unknown]
  - Death [Fatal]
  - Premature baby [Unknown]
  - Polyhydramnios [Unknown]
  - Maternal condition affecting foetus [Unknown]
  - Pre-eclampsia [Unknown]
  - Premature rupture of membranes [Unknown]
  - Oligohydramnios [Unknown]
  - Anaemia [Unknown]
  - Premature separation of placenta [Unknown]
  - Pulmonary hypertension [Unknown]
  - Gestational diabetes [Unknown]
